FAERS Safety Report 24608318 (Version 5)
Quarter: 2025Q1

REPORT INFORMATION
  Report Type: Spontaneous
  Country: JP (occurrence: JP)
  Receive Date: 20241112
  Receipt Date: 20250313
  Transmission Date: 20250409
  Serious: Yes (Death, Other)
  Sender: ALEXION PHARMACEUTICALS
  Company Number: JP-ASTRAZENECA-240117859_013120_P_1

PATIENT
  Age: 75 Year
  Weight: 70 kg

DRUGS (8)
  1. DURVALUMAB [Suspect]
     Active Substance: DURVALUMAB
     Dosage: 1500 MILLIGRAM, Q3W
  2. DURVALUMAB [Suspect]
     Active Substance: DURVALUMAB
     Dosage: 1500 MILLIGRAM, Q3W
  3. DURVALUMAB [Suspect]
     Active Substance: DURVALUMAB
     Dosage: 1500 MILLIGRAM, Q3W
  4. TREMELIMUMAB [Suspect]
     Active Substance: TREMELIMUMAB
     Indication: Non-small cell lung cancer
     Dosage: 75 MILLIGRAM, Q3W
  5. TREMELIMUMAB [Suspect]
     Active Substance: TREMELIMUMAB
  6. TREMELIMUMAB [Suspect]
     Active Substance: TREMELIMUMAB
  7. CARBOPLATIN [Concomitant]
     Active Substance: CARBOPLATIN
     Indication: Non-small cell lung cancer
     Route: 065
  8. ABRAXANE [Concomitant]
     Active Substance: PACLITAXEL
     Indication: Non-small cell lung cancer
     Route: 065

REACTIONS (10)
  - Acute myocardial infarction [Fatal]
  - Cardiac disorder [Fatal]
  - Myocardial rupture [Fatal]
  - Hypopituitarism [Recovered/Resolved]
  - Polymyalgia rheumatica [Recovered/Resolved]
  - Rash [Recovered/Resolved]
  - Liver disorder [Recovered/Resolved]
  - Diarrhoea [Unknown]
  - COVID-19 [Unknown]
  - Pyrexia [Recovered/Resolved]
